FAERS Safety Report 8550205-3 (Version None)
Quarter: 2012Q3

REPORT INFORMATION
  Report Type: 
  Country: None (occurrence: None)
  Receive Date: 20120718
  Receipt Date: 20120712
  Transmission Date: 20120928
  Serious: Yes (Other)
  Sender: FDA-Public Use
  Company Number: 85732 -4

PATIENT
  Age: 45 Year
  Sex: Male
  Weight: 74 kg

DRUGS (1)
  1. ETOPOSIDE [Suspect]
     Indication: NON-SMALL CELL LUNG CANCER STAGE III
     Dosage: 50MG/M2
     Dates: start: 20090622, end: 20090724

REACTIONS (11)
  - LEUKOPENIA [None]
  - NEUTROPENIA [None]
  - COUGH [None]
  - DYSPHAGIA [None]
  - NAUSEA [None]
  - THROMBOPHLEBITIS [None]
  - OESOPHAGITIS [None]
  - DYSPNOEA [None]
  - NON-SMALL CELL LUNG CANCER [None]
  - LARYNGITIS [None]
  - NEOPLASM PROGRESSION [None]
